FAERS Safety Report 12384104 (Version 1)
Quarter: 2016Q2

REPORT INFORMATION
  Report Type: Spontaneous
  Country: US (occurrence: None)
  Receive Date: 20160518
  Receipt Date: 20160518
  Transmission Date: 20160815
  Serious: Yes (Life-Threatening, Hospitalization, Disabling)
  Sender: FDA-Public Use
  Company Number: None

PATIENT
  Age: 50 Year
  Sex: Female
  Weight: 146.06 kg

DRUGS (12)
  1. PRENATAL VITAMINS [Concomitant]
     Active Substance: VITAMINS
  2. CRYSELLE [Suspect]
     Active Substance: ETHINYL ESTRADIOL\NORGESTREL
     Indication: MENORRHAGIA
     Route: 048
     Dates: start: 20160222, end: 20160328
  3. WELLBUTRIN [Concomitant]
     Active Substance: BUPROPION HYDROCHLORIDE
  4. COUMADIN [Concomitant]
     Active Substance: WARFARIN SODIUM
  5. TESSALON [Concomitant]
     Active Substance: BENZONATATE
  6. NORCO [Concomitant]
     Active Substance: ACETAMINOPHEN\HYDROCODONE BITARTRATE
  7. LOSARTAN. [Concomitant]
     Active Substance: LOSARTAN
  8. TYLENOL EXTRA STRENGTH [Concomitant]
     Active Substance: ACETAMINOPHEN
  9. DOXYLAMINE SUCCINATE. [Concomitant]
     Active Substance: DOXYLAMINE SUCCINATE
  10. CRYSELLE [Suspect]
     Active Substance: ETHINYL ESTRADIOL\NORGESTREL
     Indication: MENSTRUATION IRREGULAR
     Route: 048
     Dates: start: 20160222, end: 20160328
  11. CPAP MACHINE [Concomitant]
  12. CONCERTA [Concomitant]
     Active Substance: METHYLPHENIDATE HYDROCHLORIDE

REACTIONS (9)
  - Pulmonary embolism [None]
  - Activities of daily living impaired [None]
  - Deep vein thrombosis [None]
  - Pain [None]
  - Dyspnoea [None]
  - Bronchitis [None]
  - Upper respiratory tract infection [None]
  - Traumatic lung injury [None]
  - Impaired work ability [None]

NARRATIVE: CASE EVENT DATE: 20160328
